FAERS Safety Report 11512832 (Version 1)
Quarter: 2015Q3

REPORT INFORMATION
  Report Type: Spontaneous
  Country: US (occurrence: None)
  Receive Date: 20150915
  Receipt Date: 20150915
  Transmission Date: 20151125
  Serious: Yes (Life-Threatening)
  Sender: FDA-Public Use
  Company Number: None

PATIENT
  Age: 75 Year
  Sex: Male
  Weight: 78.93 kg

DRUGS (12)
  1. CALCIUM CITRAE WITH VIT D3 [Concomitant]
  2. VITAMIN B12 [Concomitant]
     Active Substance: CYANOCOBALAMIN
  3. TOPEROL [Concomitant]
  4. AVEED [Suspect]
     Active Substance: TESTOSTERONE UNDECANOATE
     Indication: BLOOD TESTOSTERONE DECREASED
     Dosage: YES INITIAL DOSE INJECTION INTO BUTTOCKS FAT
     Dates: start: 20150826
  5. MELOXICAM. [Concomitant]
     Active Substance: MELOXICAM
  6. COENZYME Q10 [Concomitant]
     Active Substance: UBIDECARENONE
  7. SIMVASTATIN. [Concomitant]
     Active Substance: SIMVASTATIN
  8. ASPIRIN. [Concomitant]
     Active Substance: ASPIRIN
  9. XARELTO [Concomitant]
     Active Substance: RIVAROXABAN
  10. FINASTERIDE. [Concomitant]
     Active Substance: FINASTERIDE
  11. VITAMIN D3 [Concomitant]
     Active Substance: CHOLECALCIFEROL
  12. FISH OIL [Concomitant]
     Active Substance: FISH OIL

REACTIONS (1)
  - Deep vein thrombosis [None]

NARRATIVE: CASE EVENT DATE: 20150908
